FAERS Safety Report 6156837-4 (Version None)
Quarter: 2009Q2

REPORT INFORMATION
  Report Type: 
  Country: None (occurrence: None)
  Receive Date: 20090416
  Receipt Date: 20090407
  Transmission Date: 20091009
  Serious: No
  Sender: FDA-Public Use
  Company Number: US-ELI_LILLY_AND_COMPANY-US200901000701

PATIENT
  Sex: Female

DRUGS (12)
  1. CYMBALTA [Suspect]
     Indication: FIBROMYALGIA
     Dosage: 60 MG, DAILY (1/D)
     Dates: start: 20080611, end: 20081222
  2. CYMBALTA [Suspect]
     Dosage: 60 MG, DAILY (1/D)
     Dates: start: 20090115, end: 20090228
  3. TRAZODONE HCL [Concomitant]
     Dosage: 50 MG, DAILY (1/D)
  4. SIMVASTATIN [Concomitant]
     Dosage: 20 MG, DAILY (1/D)
  5. CARTIA XT [Concomitant]
     Dosage: 24 MG, DAILY (1/D)
  6. FOLIC ACID [Concomitant]
     Dosage: 1 MG, DAILY (1/D)
  7. METHOTREXATE [Concomitant]
  8. ASPIRIN [Concomitant]
     Dosage: UNK, DAILY (1/D)
  9. DIOVAN HCT [Concomitant]
     Dosage: UNK, DAILY (1/D)
  10. IRON [Concomitant]
     Dosage: 325 MG, 2/D
  11. PLAVIX [Concomitant]
     Dosage: 75 MG, DAILY (1/D)
  12. LEVOTHYROXINE SODIUM [Concomitant]
     Dosage: UNK, DAILY (1/D)

REACTIONS (3)
  - ANTINUCLEAR ANTIBODY POSITIVE [None]
  - OCULAR ICTERUS [None]
  - YELLOW SKIN [None]
